FAERS Safety Report 5075022-0 (Version None)
Quarter: 2006Q3

REPORT INFORMATION
  Report Type: 
  Country: None (occurrence: None)
  Receive Date: 20060807
  Receipt Date: 20060807
  Transmission Date: 20061208
  Serious: Yes (Other)
  Sender: FDA-Public Use
  Company Number: None

PATIENT
  Sex: Male
  Weight: 58.9676 kg

DRUGS (2)
  1. ZYRTEC [Suspect]
     Indication: SINUSITIS
     Dosage: DAILY
     Dates: start: 20050701, end: 20051001
  2. ZYRTEC-D 12 HOUR [Suspect]

REACTIONS (6)
  - ANHIDROSIS [None]
  - DRUG HYPERSENSITIVITY [None]
  - PAIN [None]
  - PARAESTHESIA [None]
  - PRURITUS [None]
  - URTICARIA [None]
